FAERS Safety Report 5448179-7 (Version None)
Quarter: 2007Q3

REPORT INFORMATION
  Report Type: 
  Country: None (occurrence: None)
  Receive Date: 20070905
  Receipt Date: 20070827
  Transmission Date: 20080115
  Serious: Yes (Hospitalization)
  Sender: FDA-Public Use
  Company Number: MEDI-0004336

PATIENT
  Age: 7 Month

DRUGS (1)
  1. SYNAGIS [Suspect]
     Indication: ANTIVIRAL PROPHYLAXIS
     Dosage: 100 MG, 1 IN 30 D; INTRAMUSCULAR
     Route: 030
     Dates: start: 20051020, end: 20051215

REACTIONS (1)
  - LUNG DISORDER [None]
